FAERS Safety Report 26178279 (Version 1)
Quarter: 2025Q4

REPORT INFORMATION
  Report Type: Spontaneous
  Country: JP (occurrence: JP)
  Receive Date: 20251219
  Receipt Date: 20251219
  Transmission Date: 20260117
  Serious: Yes (Other)
  Sender: ROCHE
  Company Number: JP-CHUGAI-2025039397

PATIENT
  Age: 58 Year
  Sex: Female

DRUGS (4)
  1. CELLCEPT [Suspect]
     Active Substance: MYCOPHENOLATE MOFETIL
     Indication: Product used for unknown indication
     Dosage: UNK
     Route: 048
  2. ASPIRIN [Suspect]
     Active Substance: ASPIRIN
     Indication: Product used for unknown indication
     Dosage: UNK
  3. OPSUMIT [Suspect]
     Active Substance: MACITENTAN
     Indication: Product used for unknown indication
     Dosage: UNK
  4. PREDONINE [Suspect]
     Active Substance: PREDNISOLONE
     Indication: Product used for unknown indication
     Dosage: UNK

REACTIONS (6)
  - Malaise [Not Recovered/Not Resolved]
  - Fatigue [Not Recovered/Not Resolved]
  - Palpitations [Not Recovered/Not Resolved]
  - Dyspnoea [Not Recovered/Not Resolved]
  - Diarrhoea [Not Recovered/Not Resolved]
  - Arrhythmia [Unknown]

NARRATIVE: CASE EVENT DATE: 20251101
